FAERS Safety Report 4862383-8 (Version None)
Quarter: 2005Q4

REPORT INFORMATION
  Report Type: 
  Country: None (occurrence: None)
  Receive Date: 20051219
  Receipt Date: 20051219
  Transmission Date: 20060501
  Serious: Yes (Hospitalization)
  Sender: FDA-Public Use
  Company Number: None

PATIENT
  Age: 65 Year
  Sex: Female

DRUGS (2)
  1. WARFARIN    2MG [Suspect]
     Indication: PULMONARY EMBOLISM
     Dosage: 2MG  DAILY  PO
     Route: 048
  2. CELECOXIB  200MG    PFIZER [Suspect]
     Indication: ARTHRITIS
     Dosage: 200MG  DAILY  PO
     Route: 048

REACTIONS (7)
  - GASTRIC ULCER [None]
  - GASTRITIS [None]
  - GASTRITIS EROSIVE [None]
  - HAEMOGLOBIN DECREASED [None]
  - INTERNATIONAL NORMALISED RATIO DECREASED [None]
  - MELAENA [None]
  - THROMBOSIS [None]
